FAERS Safety Report 8318255-X (Version None)
Quarter: 2012Q1

REPORT INFORMATION
  Report Type: 
  Country: None (occurrence: None)
  Receive Date: 20120315
  Receipt Date: 20110315
  Transmission Date: 20120608
  Serious: Yes (Other)
  Sender: FDA-Public Use
  Company Number: PHHY2011US12955

PATIENT
  Age: 51 Year
  Sex: Female

DRUGS (4)
  1. GILENYA [Suspect]
     Indication: MULTIPLE SCLEROSIS
     Dosage: 0.5 MG, BID, ORAL
     Route: 048
     Dates: start: 20110204
  2. LEVOTHYROXINE SODIUM [Concomitant]
  3. DIAZEPAM [Concomitant]
  4. GABAPENTIN [Concomitant]

REACTIONS (9)
  - INCORRECT DOSE ADMINISTERED [None]
  - HEADACHE [None]
  - VOMITING [None]
  - DYSPEPSIA [None]
  - DIZZINESS [None]
  - NAUSEA [None]
  - BRADYCARDIA [None]
  - VISUAL IMPAIRMENT [None]
  - OVERDOSE [None]
